FAERS Safety Report 11458287 (Version 1)
Quarter: 2015Q3

REPORT INFORMATION
  Report Type: Spontaneous
  Country: RU (occurrence: RU)
  Receive Date: 20150904
  Receipt Date: 20150904
  Transmission Date: 20151125
  Serious: Yes (Other)
  Sender: FDA-Public Use
  Company Number: RU-TEVA-552665ISR

PATIENT
  Age: 29 Year
  Sex: Female

DRUGS (1)
  1. FINLEPSIN RETARD [Suspect]
     Active Substance: CARBAMAZEPINE
     Route: 048

REACTIONS (2)
  - Mental retardation [Recovering/Resolving]
  - Rash [Recovering/Resolving]
